FAERS Safety Report 16914272 (Version 1)
Quarter: 2019Q4

REPORT INFORMATION
  Report Type: Spontaneous
  Country: SE (occurrence: SE)
  Receive Date: 20191014
  Receipt Date: 20191014
  Transmission Date: 20200122
  Serious: Yes (Hospitalization)
  Sender: FDA-Public Use
  Company Number: SE-PFIZER INC-2019432863

PATIENT
  Age: 63 Year
  Sex: Male

DRUGS (7)
  1. MINDIAB [Suspect]
     Active Substance: GLIPIZIDE
     Indication: TYPE 2 DIABETES MELLITUS
     Dosage: 5 MG, 3X/DAY
     Dates: start: 1977
  2. MINDIAB [Interacting]
     Active Substance: GLIPIZIDE
     Dosage: 5 MG, 2X/DAY
  3. POTASSIUM [Concomitant]
     Active Substance: POTASSIUM
     Indication: PERIPHERAL VASCULAR DISORDER
     Dosage: 1 G, 3X/DAY
  4. DICLOXACILLIN [Concomitant]
     Active Substance: DICLOXACILLIN
     Indication: LOCALISED INFECTION
     Dosage: 0.5 MG, 3X/DAY
  5. FUROSEMIDE. [Concomitant]
     Active Substance: FUROSEMIDE
     Indication: PERIPHERAL VASCULAR DISORDER
     Dosage: 40 MG, 2X/DAY
  6. DIGOXIN. [Concomitant]
     Active Substance: DIGOXIN
     Indication: PERIPHERAL VASCULAR DISORDER
     Dosage: 0.25 MG, 1X/DAY
  7. DICUMAROL [Interacting]
     Active Substance: DICUMAROL
     Indication: PERIPHERAL VASCULAR DISORDER
     Dosage: UNK

REACTIONS (2)
  - Hypoglycaemic coma [Recovered/Resolved]
  - Drug interaction [Unknown]

NARRATIVE: CASE EVENT DATE: 197808
